FAERS Safety Report 11349073 (Version 5)
Quarter: 2016Q4

REPORT INFORMATION
  Report Type: Report from Study
  Country: US (occurrence: US)
  Receive Date: 20150807
  Receipt Date: 20161011
  Transmission Date: 20170206
  Serious: No
  Sender: FDA-Public Use
  Company Number: US-ALEXION-A201502924

PATIENT
  Age: 60 Year
  Sex: Female

DRUGS (2)
  1. SOLIRIS [Suspect]
     Active Substance: ECULIZUMAB
     Indication: PAROXYSMAL NOCTURNAL HAEMOGLOBINURIA
     Dosage: UNK
     Route: 042
     Dates: start: 2008
  2. SOLIRIS [Suspect]
     Active Substance: ECULIZUMAB
     Dosage: UNK
     Route: 042

REACTIONS (10)
  - Hypokinesia [Recovered/Resolved]
  - Dyskinesia [Recovered/Resolved]
  - Arthritis [Unknown]
  - Tremor [Recovered/Resolved]
  - Haemoglobin decreased [Not Recovered/Not Resolved]
  - Dyskinesia [Unknown]
  - Infusion related reaction [Unknown]
  - Fatigue [Not Recovered/Not Resolved]
  - Tremor [Recovered/Resolved]
  - Memory impairment [Not Recovered/Not Resolved]

NARRATIVE: CASE EVENT DATE: 20150714
